FAERS Safety Report 8112547-5 (Version None)
Quarter: 2012Q1

REPORT INFORMATION
  Report Type: 
  Country: None (occurrence: None)
  Receive Date: 20120203
  Receipt Date: 20120126
  Transmission Date: 20120608
  Serious: Yes (Death)
  Sender: FDA-Public Use
  Company Number: US-ROCHE-1033914

PATIENT
  Sex: Female

DRUGS (7)
  1. ZOMETA [Concomitant]
     Dates: start: 20060801
  2. TAMOXIFEN CITRATE [Concomitant]
     Dates: start: 20041201
  3. TAXOL [Concomitant]
     Dates: start: 20041201
  4. AVASTIN [Suspect]
     Indication: PRODUCT USED FOR UNKNOWN INDICATION
  5. FEMARA [Concomitant]
     Dates: start: 20060801
  6. ABRAXANE [Concomitant]
     Dates: start: 20060801
  7. GEMZAR [Concomitant]
     Dates: start: 20071001

REACTIONS (1)
  - BREAST CANCER METASTATIC [None]
